FAERS Safety Report 7975966-3 (Version None)
Quarter: 2011Q4

REPORT INFORMATION
  Report Type: 
  Country: None (occurrence: None)
  Receive Date: 20111213
  Receipt Date: 20111008
  Transmission Date: 20120403
  Serious: No
  Sender: FDA-Public Use
  Company Number: US-AMGEN-USASP2011050608

PATIENT
  Age: 54 Year
  Sex: Female

DRUGS (3)
  1. ENBREL [Suspect]
     Indication: RHEUMATOID ARTHRITIS
     Dosage: 50 MG, QWK
     Dates: start: 20081102
  2. ENBREL [Suspect]
     Indication: OSTEOARTHRITIS
  3. ENBREL [Suspect]
     Indication: FIBROMYALGIA

REACTIONS (12)
  - MICTURITION URGENCY [None]
  - NECK PAIN [None]
  - ARTHRALGIA [None]
  - HEPATIC ENZYME INCREASED [None]
  - INJECTION SITE WARMTH [None]
  - POLLAKIURIA [None]
  - INJECTION SITE SWELLING [None]
  - BLADDER PAIN [None]
  - HYPERHIDROSIS [None]
  - PAIN IN EXTREMITY [None]
  - INJECTION SITE ERYTHEMA [None]
  - MUSCULOSKELETAL PAIN [None]
